FAERS Safety Report 16347549 (Version 1)
Quarter: 2019Q2

REPORT INFORMATION
  Report Type: Spontaneous
  Country: FR (occurrence: FR)
  Receive Date: 20190523
  Receipt Date: 20190523
  Transmission Date: 20190711
  Serious: Yes (Hospitalization, Other)
  Sender: FDA-Public Use
  Company Number: FR-MYLANLABS-2019M1047017

PATIENT
  Age: 62 Year
  Sex: Female

DRUGS (5)
  1. COLCHIMAX                          /01722001/ [Interacting]
     Active Substance: COLCHICINE\OPIUM\TIEMONIUM METHYLSULFATE
     Indication: PERICARDITIS
     Dosage: 1 DOSAGE FORM, QD
     Route: 048
  2. PREVISCAN                          /00789001/ [Interacting]
     Active Substance: FLUINDIONE
     Indication: DEEP VEIN THROMBOSIS
     Dosage: 25 MILLIGRAM, QD
     Route: 048
     Dates: start: 20180615, end: 20180929
  3. SIMVASTATIN. [Suspect]
     Active Substance: SIMVASTATIN
     Indication: HYPERCHOLESTEROLAEMIA
     Dosage: 20 MILLIGRAM, QD
  4. PROLIA [Interacting]
     Active Substance: DENOSUMAB
     Indication: SPINAL COMPRESSION FRACTURE
     Dosage: 60 MILLIGRAM
     Route: 058
     Dates: start: 20180620
  5. CORTANCYL [Interacting]
     Active Substance: PREDNISONE
     Indication: CROHN^S DISEASE
     Dosage: 40 MILLIGRAM, QD

REACTIONS (5)
  - Drug interaction [Unknown]
  - International normalised ratio increased [Recovered/Resolved]
  - Pericarditis [Recovered/Resolved]
  - Rectal haemorrhage [Recovered/Resolved]
  - Condition aggravated [Recovered/Resolved]

NARRATIVE: CASE EVENT DATE: 20180629
